FAERS Safety Report 19820590 (Version 3)
Quarter: 2025Q3

REPORT INFORMATION
  Report Type: Report from Study
  Country: CA (occurrence: CA)
  Receive Date: 20210913
  Receipt Date: 20250919
  Transmission Date: 20251021
  Serious: Yes (Other)
  Sender: TAKEDA
  Company Number: CA-TAKEDA-2018TUS004320

PATIENT
  Age: 64 Year
  Sex: Female

DRUGS (26)
  1. VEDOLIZUMAB [Suspect]
     Active Substance: VEDOLIZUMAB
     Indication: Colitis ulcerative
  2. VEDOLIZUMAB [Suspect]
     Active Substance: VEDOLIZUMAB
  3. VEDOLIZUMAB [Suspect]
     Active Substance: VEDOLIZUMAB
  4. VEDOLIZUMAB [Suspect]
     Active Substance: VEDOLIZUMAB
  5. VEDOLIZUMAB [Suspect]
     Active Substance: VEDOLIZUMAB
  6. ZOPICLONE [Concomitant]
     Active Substance: ZOPICLONE
     Indication: Sleep disorder
  7. PANTOPRAZOLE [Concomitant]
     Active Substance: PANTOPRAZOLE
     Dosage: 40 MILLIGRAM, BID
     Dates: start: 2006
  8. AMITRIPTYLINE [Concomitant]
     Active Substance: AMITRIPTYLINE
     Dosage: 50 MILLIGRAM, QD
     Dates: start: 2006
  9. ATIVAN [Concomitant]
     Active Substance: LORAZEPAM
     Indication: Anxiety
     Dosage: 0.5 MILLIGRAM, QD
  10. BETAMETHASONE [Concomitant]
     Active Substance: BETAMETHASONE
     Indication: Ear infection fungal
  11. BETAMETHASONE [Concomitant]
     Active Substance: BETAMETHASONE
     Indication: Fungal foot infection
  12. BETAMETHASONE [Concomitant]
     Active Substance: BETAMETHASONE
     Indication: Skin disorder
  13. CLOBETASOL [Concomitant]
     Active Substance: CLOBETASOL
     Indication: Oral disorder
  14. CLOTRIMAZOLE [Concomitant]
     Active Substance: CLOTRIMAZOLE
     Indication: Oral disorder
     Route: 061
  15. NYSTATIN [Concomitant]
     Active Substance: NYSTATIN
     Indication: Mass
  16. VOLTAREN [Concomitant]
     Active Substance: DICLOFENAC SODIUM
     Route: 061
  17. BACLOFEN [Concomitant]
     Active Substance: BACLOFEN
     Indication: Fibromyalgia
     Dosage: UNK UNK, MONTHLY
  18. GABAPENTIN [Concomitant]
     Active Substance: GABAPENTIN
     Indication: Fibromyalgia
     Dosage: UNK UNK, MONTHLY
  19. KETAMINE [Concomitant]
     Active Substance: KETAMINE
     Indication: Fibromyalgia
     Dosage: UNK UNK, MONTHLY
  20. OMEGA 3 [Concomitant]
     Active Substance: CAPSAICIN
     Dosage: UNK UNK, QD
  21. ESCITALOPRAM [Concomitant]
     Active Substance: ESCITALOPRAM OXALATE
     Indication: Anxiety
     Dosage: 10 MILLIGRAM, QD
  22. RANITIDINE [Concomitant]
     Active Substance: RANITIDINE
     Dosage: 150 MILLIGRAM, QD
  23. LAMISIL [Concomitant]
     Active Substance: TERBINAFINE HYDROCHLORIDE
     Indication: Tinea pedis
  24. VALACYCLOVIR [Concomitant]
     Active Substance: VALACYCLOVIR HYDROCHLORIDE
  25. DOMPERIDONE [Concomitant]
     Active Substance: DOMPERIDONE
  26. CANNABIS SATIVA SUBSP. INDICA TOP [Concomitant]
     Active Substance: CANNABIS SATIVA SUBSP. INDICA TOP
     Indication: Fibromyalgia

REACTIONS (8)
  - Pneumonia [Recovering/Resolving]
  - Frequent bowel movements [Unknown]
  - Abdominal pain upper [Unknown]
  - Constipation [Unknown]
  - Abdominal distension [Unknown]
  - Drug ineffective [Unknown]
  - Herpes zoster [Recovering/Resolving]
  - Headache [Unknown]

NARRATIVE: CASE EVENT DATE: 20210904
